FAERS Safety Report 20249089 (Version 11)
Quarter: 2023Q4

REPORT INFORMATION
  Report Type: Spontaneous
  Country: US (occurrence: US)
  Receive Date: 20211229
  Receipt Date: 20231106
  Transmission Date: 20240110
  Serious: Yes (Other)
  Sender: FDA-Public Use
  Company Number: US-PFIZER INC-2021750244

PATIENT
  Age: 73 Year
  Sex: Female

DRUGS (2)
  1. IBRANCE [Suspect]
     Active Substance: PALBOCICLIB
     Indication: Breast cancer stage IV
     Dosage: 125 MG
  2. IBRANCE [Suspect]
     Active Substance: PALBOCICLIB
     Dosage: 100 MG, CYCLIC (ONCE A DAY FOR 21 DAYS FOLLOWED BY 7 DAYS OFF)
     Route: 048

REACTIONS (9)
  - Pneumonia [Recovered/Resolved]
  - Fatigue [Unknown]
  - Fall [Unknown]
  - Somnolence [Unknown]
  - Tooth disorder [Unknown]
  - Hypoacusis [Unknown]
  - Malaise [Unknown]
  - Insomnia [Unknown]
  - Memory impairment [Unknown]
